FAERS Safety Report 5588828-6 (Version None)
Quarter: 2008Q1

REPORT INFORMATION
  Report Type: 
  Country: None (occurrence: None)
  Receive Date: 20080111
  Receipt Date: 20080102
  Transmission Date: 20080703
  Serious: Yes (Hospitalization)
  Sender: FDA-Public Use
  Company Number: GB-WYE-H01925008

PATIENT
  Age: 25 Year
  Sex: Male

DRUGS (10)
  1. IBUPROFEN [Suspect]
     Indication: PAIN IN EXTREMITY
     Dosage: UNKNOWN
     Route: 065
  2. CLARITHROMYCIN [Suspect]
     Indication: CHEST DISCOMFORT
     Dosage: UNKNOWN
     Route: 065
  3. TENOFOVIR DISOPROXIL FUMARATE [Suspect]
     Indication: HIV INFECTION
     Dosage: UNKNOWN
     Route: 065
  4. LOPERAMIDE HYDROCHLORIDE [Suspect]
     Indication: DIARRHOEA
     Dosage: UNKNOWN
     Route: 065
  5. NEVIRAPINE [Suspect]
     Indication: HIV INFECTION
     Dosage: UNKNOWN
     Route: 065
  6. LAMIVUDINE + ZIDOVUDINE [Suspect]
     Indication: HIV INFECTION
     Dosage: UNKNOWN
     Route: 065
  7. EFAVIRENZ [Suspect]
     Indication: HIV INFECTION
     Dosage: UNKNOWN
     Route: 065
  8. SULFAMETHOXAZOLE AND TRIMETHOPRIM [Suspect]
     Indication: ANTIFUNGAL PROPHYLAXIS
     Dosage: UNKNOWN
     Route: 065
  9. CIPROFLOXACIN [Suspect]
     Indication: CHEST DISCOMFORT
     Dosage: UNKNOWN
     Route: 065
  10. LAMIVUDINE [Suspect]
     Indication: HIV INFECTION
     Dosage: UNKNOWN
     Route: 065

REACTIONS (1)
  - VANISHING BILE DUCT SYNDROME [None]
